FAERS Safety Report 17559629 (Version 1)
Quarter: 2020Q1

REPORT INFORMATION
  Report Type: Other
  Country: US (occurrence: US)
  Receive Date: 20200319
  Receipt Date: 20200319
  Transmission Date: 20200409
  Serious: No
  Sender: FDA-Public Use
  Company Number: US-APOTEX-2019AP011356

PATIENT

DRUGS (2)
  1. MODAFINIL TABLETS USP [Suspect]
     Active Substance: MODAFINIL
     Dosage: 2 DF, DAILY
     Route: 065
  2. MODAFINIL TABLETS USP [Suspect]
     Active Substance: MODAFINIL
     Indication: SOMNOLENCE
     Dosage: 1 DF, DAILY
     Route: 065

REACTIONS (2)
  - Drug ineffective [Recovered/Resolved]
  - Product substitution issue [Unknown]
